FAERS Safety Report 26041432 (Version 4)
Quarter: 2025Q4

REPORT INFORMATION
  Report Type: Spontaneous
  Country: JP (occurrence: JP)
  Receive Date: 20251113
  Receipt Date: 20251209
  Transmission Date: 20260119
  Serious: Yes (Other)
  Sender: ALEXION PHARMACEUTICALS
  Company Number: JP-ASTRAZENECA-202511JPN004305JP

PATIENT
  Age: 6 Decade
  Sex: Male

DRUGS (3)
  1. LYNPARZA [Suspect]
     Active Substance: OLAPARIB
     Indication: Prostate cancer
     Route: 065
  2. ZOLADEX [Suspect]
     Active Substance: GOSERELIN ACETATE
     Indication: Prostate cancer
     Route: 065
  3. CASODEX [Suspect]
     Active Substance: BICALUTAMIDE
     Indication: Prostate cancer

REACTIONS (2)
  - Hepatic function abnormal [Unknown]
  - Prostatic specific antigen increased [Unknown]
